FAERS Safety Report 9310852 (Version 1)
Quarter: 2013Q2

REPORT INFORMATION
  Report Type: Spontaneous
  Country: US (occurrence: None)
  Receive Date: 20130523
  Receipt Date: 20130523
  Transmission Date: 20140414
  Serious: No
  Sender: FDA-Public Use
  Company Number: None

PATIENT
  Age: 67 Year
  Sex: Female

DRUGS (1)
  1. NEORAL [Suspect]
     Dosage: 100MG QAM AND 75MG QPM?100MG QAM AND 75MG
     Route: 048
     Dates: start: 20120131

REACTIONS (3)
  - Hot flush [None]
  - Skin odour abnormal [None]
  - Skin disorder [None]
